FAERS Safety Report 9148934 (Version 4)
Quarter: 2013Q2

REPORT INFORMATION
  Report Type: Spontaneous
  Country: GB (occurrence: None)
  Receive Date: 20130130
  Receipt Date: 20130509
  Transmission Date: 20140414
  Serious: Yes (Other)
  Sender: FDA-Public Use
  Company Number: 2013MPI00027

PATIENT
  Age: 42 Year
  Sex: Male

DRUGS (1)
  1. ADCETRIS [Suspect]
     Indication: ANAPLASTIC LARGE-CELL LYMPHOMA
     Dosage: QCYCLE

REACTIONS (9)
  - Graft versus host disease [None]
  - Tumour lysis syndrome [None]
  - Impaired work ability [None]
  - Hyperuricaemia [None]
  - Hypocalcaemia [None]
  - Hyperphosphataemia [None]
  - Scleroderma [None]
  - Blood lactate dehydrogenase increased [None]
  - Liver function test abnormal [None]
